FAERS Safety Report 6621549-7 (Version None)
Quarter: 2010Q1

REPORT INFORMATION
  Report Type: 
  Country: None (occurrence: None)
  Receive Date: 20100309
  Receipt Date: 20100215
  Transmission Date: 20100710
  Serious: No
  Sender: FDA-Public Use
  Company Number: US-BAYER-201011120NA

PATIENT

DRUGS (3)
  1. MAGNEVIST [Suspect]
     Indication: NUCLEAR MAGNETIC RESONANCE IMAGING
     Dosage: VIA POWER INJECTOR AT A RATE OF 2 ML/SECOND; ADDITIONAL MAGNEVIST GIVEN FROM LOT 84049C OR 84516BB
     Route: 042
     Dates: start: 20091228, end: 20091228
  2. MAGNEVIST [Suspect]
     Route: 042
     Dates: start: 20091228, end: 20091228
  3. MAGNEVIST [Suspect]
     Route: 042
     Dates: start: 20091228, end: 20091228

REACTIONS (1)
  - VOMITING [None]
